FAERS Safety Report 6819483-2 (Version None)
Quarter: 2010Q3

REPORT INFORMATION
  Report Type: 
  Country: None (occurrence: None)
  Receive Date: 20100707
  Receipt Date: 20100623
  Transmission Date: 20110219
  Serious: Yes (Hospitalization, Other)
  Sender: FDA-Public Use
  Company Number: PHHY2010CA40533

PATIENT
  Sex: Female

DRUGS (2)
  1. ACLASTA [Suspect]
     Indication: OSTEOPOROSIS
     Dosage: 5 MG ONCE YEARLY
     Route: 042
     Dates: start: 20090510
  2. MACROBID [Concomitant]
     Indication: PROPHYLAXIS URINARY TRACT INFECTION

REACTIONS (3)
  - DENTAL CARE [None]
  - EMBOLIC STROKE [None]
  - HEMIPARESIS [None]
